FAERS Safety Report 26103268 (Version 1)
Quarter: 2025Q4

REPORT INFORMATION
  Report Type: Spontaneous
  Country: US (occurrence: US)
  Receive Date: 20251129
  Receipt Date: 20251129
  Transmission Date: 20260118
  Serious: No
  Sender: IBSA INSTITUT BIOCHIMIQUE
  Company Number: US-IBSA PHARMA INC.-2025IBS000517

PATIENT

DRUGS (1)
  1. TIROSINT [Suspect]
     Active Substance: LEVOTHYROXINE SODIUM
     Indication: Hypothyroidism
     Dosage: 112 MICROGRAM, QD
     Dates: start: 20250830, end: 20250903

REACTIONS (8)
  - Throat irritation [Unknown]
  - Oropharyngeal pain [Unknown]
  - Skin burning sensation [Unknown]
  - Chest discomfort [Unknown]
  - Drug hypersensitivity [Unknown]
  - Pruritus [Unknown]
  - Urticaria [Unknown]
  - Hyperhidrosis [Unknown]

NARRATIVE: CASE EVENT DATE: 20250831
